FAERS Safety Report 6710045-4 (Version None)
Quarter: 2010Q2

REPORT INFORMATION
  Report Type: 
  Country: None (occurrence: None)
  Receive Date: 20100504
  Receipt Date: 20100429
  Transmission Date: 20101027
  Serious: Yes (Hospitalization)
  Sender: FDA-Public Use
  Company Number: JP-SANOFI-AVENTIS-2010SA013588

PATIENT
  Age: 63 Year
  Sex: Male

DRUGS (18)
  1. ELPLAT [Suspect]
     Indication: COLON CANCER METASTATIC
     Route: 041
     Dates: start: 20100210, end: 20100210
  2. ELPLAT [Suspect]
     Route: 041
     Dates: start: 20080827, end: 20080827
  3. AVASTIN [Suspect]
     Indication: LARGE INTESTINE CARCINOMA
     Route: 041
     Dates: start: 20080827, end: 20080827
  4. AVASTIN [Suspect]
     Route: 041
     Dates: start: 20100210, end: 20100210
  5. FLUOROURACIL [Suspect]
     Indication: COLON CANCER METASTATIC
     Route: 042
  6. FLUOROURACIL [Suspect]
     Route: 042
     Dates: start: 20100210
  7. CALCIUM LEVOFOLINATE [Suspect]
     Indication: COLON CANCER METASTATIC
     Route: 041
  8. CALCIUM LEVOFOLINATE [Suspect]
     Route: 041
     Dates: start: 20100210, end: 20100210
  9. URSO 250 [Concomitant]
     Dates: start: 20071126
  10. HEPARIN SODIUM [Concomitant]
     Dates: start: 20080827, end: 20100212
  11. DEXAMETHASONE [Concomitant]
     Dates: start: 20080827, end: 20100210
  12. DEXAMETHASONE [Concomitant]
     Dates: start: 20080827, end: 20100215
  13. GRANISETRON [Concomitant]
     Dates: start: 20080827, end: 20100210
  14. SEROTONE [Concomitant]
     Dates: start: 20080827, end: 20100215
  15. SIMALDRATE AND SODIUM BICARBONATE AND CALCIUM CARBONATE AND MENTHOL AN [Concomitant]
     Dates: start: 20080827
  16. PARIET [Concomitant]
     Dates: start: 20080827, end: 20100215
  17. VITAMIN B12 [Concomitant]
     Dates: start: 20080827
  18. PROMAC /JPN/ [Concomitant]
     Dates: start: 20080827

REACTIONS (4)
  - ABDOMINAL PAIN UPPER [None]
  - BILIARY COLIC [None]
  - CHOLELITHIASIS [None]
  - PORCELAIN GALLBLADDER [None]
